FAERS Safety Report 9718053 (Version 3)
Quarter: 2013Q4

REPORT INFORMATION
  Report Type: Spontaneous
  Country: JP (occurrence: JP)
  Receive Date: 20131127
  Receipt Date: 20131206
  Transmission Date: 20140711
  Serious: Yes (Other)
  Sender: FDA-Public Use
  Company Number: JP-ASTRAZENECA-2013SE85616

PATIENT
  Age: 80 Year
  Sex: Male
  Weight: 56 kg

DRUGS (4)
  1. CASODEX [Suspect]
     Indication: PROSTATE CANCER
     Route: 048
     Dates: start: 20131108, end: 20131114
  2. LOXONIN [Concomitant]
     Dosage: DOSE UNKNOWN
     Route: 065
  3. MUCOSTA [Concomitant]
     Dosage: DOSE UNKNOWN
     Route: 065
  4. ADALAT-CR [Concomitant]
     Dosage: DOSE UNKNOWN
     Route: 065

REACTIONS (1)
  - Platelet count decreased [Recovered/Resolved]
